FAERS Safety Report 20578044 (Version 2)
Quarter: 2022Q1

REPORT INFORMATION
  Report Type: Spontaneous
  Country: TR (occurrence: TR)
  Receive Date: 20220310
  Receipt Date: 20220323
  Transmission Date: 20220423
  Serious: Yes (Hospitalization, Other)
  Sender: FDA-Public Use
  Company Number: TR-TEVA-2022-TR-2014064

PATIENT
  Age: 49 Year
  Sex: Female

DRUGS (8)
  1. LEVOFLOXACIN [Interacting]
     Active Substance: LEVOFLOXACIN
     Indication: Product used for unknown indication
     Route: 065
  2. POSACONAZOLE [Interacting]
     Active Substance: POSACONAZOLE
     Indication: Febrile neutropenia
     Route: 065
  3. PIPERACILLIN SODIUM\TAZOBACTAM SODIUM [Interacting]
     Active Substance: PIPERACILLIN SODIUM\TAZOBACTAM SODIUM
     Indication: Febrile neutropenia
     Route: 065
  4. ACYCLOVIR [Interacting]
     Active Substance: ACYCLOVIR
     Indication: Product used for unknown indication
     Route: 065
  5. TRETINOIN [Interacting]
     Active Substance: TRETINOIN
     Indication: Acute promyelocytic leukaemia
     Route: 065
  6. DAUNORUBICIN [Concomitant]
     Active Substance: DAUNORUBICIN
     Indication: Acute promyelocytic leukaemia
     Dosage: 60 MG/M2 DAILY;
     Route: 065
  7. CYTARABINE [Concomitant]
     Active Substance: CYTARABINE
     Indication: Acute promyelocytic leukaemia
     Dosage: 100 MG/M2 DAILY;
     Route: 065
  8. IDARUBICIN [Concomitant]
     Active Substance: IDARUBICIN
     Indication: Acute promyelocytic leukaemia
     Route: 065

REACTIONS (3)
  - Differentiation syndrome [Unknown]
  - Hypercalcaemia [Recovered/Resolved]
  - Drug interaction [Unknown]
